FAERS Safety Report 26116222 (Version 1)
Quarter: 2025Q4

REPORT INFORMATION
  Report Type: Spontaneous
  Country: JP (occurrence: JP)
  Receive Date: 20251203
  Receipt Date: 20251203
  Transmission Date: 20260118
  Serious: Yes (Death, Hospitalization)
  Sender: ASTELLAS
  Company Number: JP-ASTELLAS-2025-AER-067262

PATIENT
  Age: 8 Decade

DRUGS (1)
  1. CRESEMBA [Suspect]
     Active Substance: ISAVUCONAZONIUM SULFATE
     Indication: Bronchopulmonary aspergillosis
     Dosage: CAPSULE, HARD
     Route: 048
     Dates: start: 20250910

REACTIONS (2)
  - Cardiac failure [Fatal]
  - Bradycardia [Recovered/Resolved]
